FAERS Safety Report 13442295 (Version 1)
Quarter: 2017Q2

REPORT INFORMATION
  Report Type: Spontaneous
  Country: US (occurrence: US)
  Receive Date: 20170413
  Receipt Date: 20170413
  Transmission Date: 20170830
  Serious: No
  Sender: FDA-Public Use
  Company Number: None

PATIENT
  Age: 56 Year
  Sex: Female
  Weight: 102.6 kg

DRUGS (1)
  1. STELARA [Suspect]
     Active Substance: USTEKINUMAB
     Indication: PSORIASIS
     Dosage: ?          OTHER FREQUENCY:WEEK4 THEN Q 12WKS;?
     Route: 058
     Dates: start: 20170314

REACTIONS (2)
  - Upper respiratory tract infection [None]
  - Fatigue [None]

NARRATIVE: CASE EVENT DATE: 20170412
